FAERS Safety Report 5535900-2 (Version None)
Quarter: 2007Q4

REPORT INFORMATION
  Report Type: 
  Country: None (occurrence: None)
  Receive Date: 20071206
  Receipt Date: 20071128
  Transmission Date: 20080405
  Serious: Yes (Other)
  Sender: FDA-Public Use
  Company Number: FR-ASTRAZENECA-2007CG01703

PATIENT
  Age: 55 Year
  Sex: Female

DRUGS (7)
  1. SYMBICORT [Suspect]
     Indication: ASTHMA
     Dosage: 160/4.5 UG PER DOSE
     Route: 055
     Dates: end: 20071017
  2. SYMBICORT [Suspect]
     Dosage: 160/4.5 UG PER DOSE
     Route: 055
     Dates: start: 20071018, end: 20071124
  3. SYMBICORT [Suspect]
     Dosage: 160/4.5 UG PER DOSE
     Route: 055
     Dates: start: 20071124
  4. AERIUS [Concomitant]
  5. VASTAREL [Concomitant]
  6. ATARAX [Concomitant]
  7. LIPANOR [Concomitant]

REACTIONS (3)
  - ASTHMA [None]
  - DEVICE FAILURE [None]
  - DRUG INEFFECTIVE [None]
